FAERS Safety Report 8850240 (Version 2)
Quarter: 2013Q1

REPORT INFORMATION
  Report Type: Spontaneous
  Country: FI (occurrence: FI)
  Receive Date: 20121019
  Receipt Date: 20130118
  Transmission Date: 20140127
  Serious: Yes (Other)
  Sender: FDA-Public Use
  Company Number: CHPA2012FI021708

PATIENT
  Age: 65 Year
  Sex: Female

DRUGS (2)
  1. NICOTINELL TTS 10 [Suspect]
     Indication: SMOKING CESSATION THERAPY
     Dosage: 21 MG, UNK
     Route: 062
  2. NICOTINELL TTS 10 [Suspect]
     Dosage: 14 MG, UNK
     Route: 062
     Dates: end: 201209

REACTIONS (12)
  - Rash [Recovered/Resolved]
  - Stress [Unknown]
  - Fatigue [Unknown]
  - Feeling hot [Recovered/Resolved]
  - Circumoral oedema [Unknown]
  - Urticaria [Unknown]
  - Skin discolouration [Recovered/Resolved]
  - Skin exfoliation [Recovered/Resolved]
  - Application site pruritus [Recovered/Resolved]
  - Application site erythema [Recovered/Resolved]
  - Purpura [None]
  - Hypersensitivity [None]
